FAERS Safety Report 7070228-3 (Version None)
Quarter: 2010Q4

REPORT INFORMATION
  Report Type: 
  Country: None (occurrence: None)
  Receive Date: 20101028
  Receipt Date: 20100917
  Transmission Date: 20110411
  Serious: No
  Sender: FDA-Public Use
  Company Number: US-WYE-H17619110

PATIENT
  Sex: Female

DRUGS (1)
  1. EFFEXOR [Suspect]
     Indication: HOT FLUSH
     Route: 048
     Dates: start: 20070101, end: 20100101

REACTIONS (2)
  - COLD SWEAT [None]
  - DRUG WITHDRAWAL SYNDROME [None]
